FAERS Safety Report 20059659 (Version 4)
Quarter: 2022Q1

REPORT INFORMATION
  Report Type: Spontaneous
  Country: BR (occurrence: BR)
  Receive Date: 20211111
  Receipt Date: 20220304
  Transmission Date: 20220424
  Serious: Yes (Hospitalization)
  Sender: FDA-Public Use
  Company Number: BR-NAPPMUNDI-GBR-2021-0092380

PATIENT
  Age: 69 Year
  Sex: Male

DRUGS (7)
  1. BUPRENORPHINE [Suspect]
     Active Substance: BUPRENORPHINE
     Indication: Procedural pain
     Dosage: 5 MG, WEEKLY (1 PATCH, WEEKLY STRENGTH 5MG)
     Route: 062
     Dates: start: 202108, end: 20211104
  2. TRAMADOL [Concomitant]
     Active Substance: TRAMADOL
     Indication: Product used for unknown indication
     Dosage: UNK
  3. TRAMADOL [Concomitant]
     Active Substance: TRAMADOL
     Route: 065
  4. TRAMADOL [Concomitant]
     Active Substance: TRAMADOL
     Route: 065
  5. TRAMADOL [Concomitant]
     Active Substance: TRAMADOL
     Route: 065
  6. TRAMADOL [Concomitant]
     Active Substance: TRAMADOL
     Route: 065
  7. SIMVASTATIN [Concomitant]
     Active Substance: SIMVASTATIN
     Indication: Blood cholesterol
     Dosage: 1 TABLET, DAILY
     Route: 048

REACTIONS (6)
  - Heart rate increased [Recovered/Resolved]
  - Syncope [Recovered/Resolved]
  - Dizziness [Recovered/Resolved]
  - Fall [Recovered/Resolved]
  - Pyrexia [Recovered/Resolved]
  - Chest pain [Recovered/Resolved]

NARRATIVE: CASE EVENT DATE: 20211101
